FAERS Safety Report 8521153-X (Version None)
Quarter: 2012Q3

REPORT INFORMATION
  Report Type: 
  Country: None (occurrence: None)
  Receive Date: 20120719
  Receipt Date: 20120709
  Transmission Date: 20120928
  Serious: Yes (Other)
  Sender: FDA-Public Use
  Company Number: US-ELI_LILLY_AND_COMPANY-US201201006896

PATIENT
  Sex: Female
  Weight: 45 kg

DRUGS (17)
  1. FORTEO [Suspect]
     Indication: OSTEOPOROSIS
     Dosage: 20 UG, QD
  2. PRAVACHOL [Concomitant]
     Dosage: 40 MG, UNK
  3. CLONAZEPAM [Concomitant]
     Dosage: 0.5 MG, UNK
  4. AMLODIPINE [Concomitant]
     Indication: BLOOD PRESSURE
     Dosage: 5 MG, UNK
  5. TYLENOL                                 /SCH/ [Concomitant]
     Dosage: UNK
  6. FORTEO [Suspect]
     Dosage: 20 UG, QD
  7. VITAMIN D [Concomitant]
     Dosage: UNK
  8. FORTEO [Suspect]
     Dosage: 20 UG, QD
  9. FORTEO [Suspect]
     Dosage: 20 UG, QD
  10. PLAVIX [Concomitant]
     Dosage: 75 MG, UNK
  11. ASPIRIN [Concomitant]
     Dosage: UNK
  12. FORTEO [Suspect]
     Dosage: 20 UG, QD
  13. NITRO                              /00003201/ [Concomitant]
     Indication: CHEST PAIN
  14. NEXIUM [Concomitant]
     Dosage: 40 MG, UNK
  15. METOPROLOL SUCCINATE [Concomitant]
     Dosage: UNK UNK, BID
  16. FORTEO [Suspect]
     Dosage: 20 UG, QD
  17. BENAZEPRIL HYDROCHLORIDE [Concomitant]
     Indication: BLOOD PRESSURE
     Dosage: 40 MG, UNK

REACTIONS (27)
  - ANXIETY [None]
  - VITAMIN D DECREASED [None]
  - ARTHRITIS [None]
  - ARTHROPATHY [None]
  - CORONARY ARTERY OCCLUSION [None]
  - HYPOKINESIA [None]
  - CONTUSION [None]
  - INJECTION SITE HAEMATOMA [None]
  - MUSCULAR WEAKNESS [None]
  - MUSCLE DISORDER [None]
  - MUSCULOSKELETAL STIFFNESS [None]
  - LIMB DISCOMFORT [None]
  - MUSCULOSKELETAL DISCOMFORT [None]
  - CATARACT [None]
  - SYSTEMIC LUPUS ERYTHEMATOSUS [None]
  - SCAR [None]
  - BODY HEIGHT DECREASED [None]
  - VISUAL IMPAIRMENT [None]
  - INCREASED TENDENCY TO BRUISE [None]
  - MYALGIA [None]
  - FEELING ABNORMAL [None]
  - CARDIOMEGALY [None]
  - FEAR [None]
  - MYOCARDIAL INFARCTION [None]
  - PAIN IN EXTREMITY [None]
  - CARDIAC DISORDER [None]
  - WEIGHT DECREASED [None]
